FAERS Safety Report 24750532 (Version 2)
Quarter: 2024Q4

REPORT INFORMATION
  Report Type: Report from Study
  Country: DE (occurrence: DE)
  Receive Date: 20241218
  Receipt Date: 20241224
  Transmission Date: 20250115
  Serious: Yes (Hospitalization, Other)
  Sender: ABBVIE
  Company Number: DE-ABBVIE-6050693

PATIENT
  Age: 75 Year
  Sex: Male

DRUGS (1)
  1. FOSCARBIDOPA\FOSLEVODOPA [Suspect]
     Active Substance: FOSCARBIDOPA\FOSLEVODOPA
     Indication: Parkinson^s disease
     Dosage: CRN: 0.28 ML/H, CR: 0.49 ML/H, CRH: 0.51 ML/H
     Route: 058
     Dates: start: 20240924

REACTIONS (8)
  - Movement disorder [Unknown]
  - Hypokinesia [Not Recovered/Not Resolved]
  - Infusion site pain [Not Recovered/Not Resolved]
  - Hallucination [Unknown]
  - Infusion site nodule [Not Recovered/Not Resolved]
  - Tremor [Not Recovered/Not Resolved]
  - Infusion site abscess [Recovering/Resolving]
  - Infusion site inflammation [Not Recovered/Not Resolved]

NARRATIVE: CASE EVENT DATE: 20240101
